FAERS Safety Report 8371358-6 (Version None)
Quarter: 2012Q2

REPORT INFORMATION
  Report Type: 
  Country: None (occurrence: None)
  Receive Date: 20120518
  Receipt Date: 20120511
  Transmission Date: 20120825
  Serious: Yes (Hospitalization, Other)
  Sender: FDA-Public Use
  Company Number: US-ASTRAZENECA-2011SE27429

PATIENT
  Age: 66 Year
  Sex: Female

DRUGS (3)
  1. NEXIUM [Suspect]
     Dosage: GENERIC
     Route: 048
  2. MORPHINE [Concomitant]
     Indication: MIGRAINE
  3. NEXIUM [Suspect]
     Route: 048

REACTIONS (18)
  - BALANCE DISORDER [None]
  - NERVOUS SYSTEM DISORDER [None]
  - MEMORY IMPAIRMENT [None]
  - ILL-DEFINED DISORDER [None]
  - ABDOMINAL DISCOMFORT [None]
  - DRUG EFFECT DECREASED [None]
  - ULCER HAEMORRHAGE [None]
  - TRANSIENT ISCHAEMIC ATTACK [None]
  - DYSPNOEA [None]
  - CEREBROVASCULAR ACCIDENT [None]
  - ABDOMINAL PAIN UPPER [None]
  - ASTHENIA [None]
  - MIGRAINE [None]
  - VISUAL IMPAIRMENT [None]
  - WEIGHT DECREASED [None]
  - DRUG INEFFECTIVE [None]
  - HALLUCINATION, VISUAL [None]
  - INTENTIONAL DRUG MISUSE [None]
